FAERS Safety Report 13128336 (Version 11)
Quarter: 2018Q3

REPORT INFORMATION
  Report Type: Report from Study
  Country: FR (occurrence: FR)
  Receive Date: 20170118
  Receipt Date: 20180706
  Transmission Date: 20181010
  Serious: Yes (Other)
  Sender: FDA-Public Use
  Company Number: FR-SEATTLE GENETICS-2017SGN00062

PATIENT
  Age: 44 Year
  Sex: Male

DRUGS (4)
  1. DOXORUBICIN [Suspect]
     Active Substance: DOXORUBICIN
     Indication: HODGKIN^S DISEASE
     Dosage: UNK
     Route: 065
     Dates: start: 20160831, end: 20161216
  2. BRENTUXIMAB VEDOTIN?MPI [Suspect]
     Active Substance: BRENTUXIMAB VEDOTIN
     Indication: HODGKIN^S DISEASE
     Dosage: 90 MG, UNK
     Route: 065
     Dates: start: 20160831
  3. VINBLASTINE [Suspect]
     Active Substance: VINBLASTINE
     Indication: HODGKIN^S DISEASE
     Dosage: UNK
     Route: 065
     Dates: start: 20160831, end: 20161216
  4. DACARBAZINE. [Suspect]
     Active Substance: DACARBAZINE
     Indication: HODGKIN^S DISEASE
     Dosage: UNK
     Route: 065
     Dates: start: 20160831, end: 20161216

REACTIONS (1)
  - Deep vein thrombosis [Recovered/Resolved with Sequelae]

NARRATIVE: CASE EVENT DATE: 20170112
